FAERS Safety Report 6770451-9 (Version None)
Quarter: 2010Q2

REPORT INFORMATION
  Report Type: 
  Country: None (occurrence: None)
  Receive Date: 20100615
  Receipt Date: 20100603
  Transmission Date: 20101027
  Serious: Yes (Other)
  Sender: FDA-Public Use
  Company Number: US-PFIZER INC-2010069763

PATIENT
  Sex: Female
  Weight: 83.9 kg

DRUGS (7)
  1. CHANTIX [Suspect]
     Indication: SMOKING CESSATION THERAPY
     Dosage: UNK MG, UNK
     Route: 048
     Dates: start: 20100525
  2. XANAX [Concomitant]
     Indication: ANXIETY
     Dosage: 0.5 MG, UNK
  3. LEXAPRO [Concomitant]
     Indication: DEPRESSION
     Dosage: UNK
     Dates: start: 20090101
  4. KLONOPIN [Concomitant]
     Indication: ANXIETY
     Dosage: 1 MG, UNK
     Dates: start: 20090101
  5. ALBUTEROL [Concomitant]
     Indication: ASTHMA
     Dosage: UNK
  6. ADVAIR DISKUS 100/50 [Concomitant]
     Indication: ASTHMA
     Dosage: UNK
  7. PROZAC [Concomitant]
     Indication: ASTHMA
     Dosage: UNK

REACTIONS (3)
  - CHOKING SENSATION [None]
  - MOOD SWINGS [None]
  - PRURITUS [None]
